FAERS Safety Report 6661337-9 (Version None)
Quarter: 2010Q1

REPORT INFORMATION
  Report Type: 
  Country: None (occurrence: None)
  Receive Date: 20100331
  Receipt Date: 20100322
  Transmission Date: 20100710
  Serious: Yes (Hospitalization, Other)
  Sender: FDA-Public Use
  Company Number: PHHY2010FR18389

PATIENT
  Age: 80 Year
  Sex: Female

DRUGS (5)
  1. CIBADREX [Suspect]
     Dosage: 1 DF, ONCE/SINGLE
     Route: 048
     Dates: end: 20100211
  2. UN-ALFA [Suspect]
     Dosage: 1 UG, ONCE/SINGLE
     Route: 048
     Dates: end: 20100211
  3. CALTRATE [Suspect]
     Dosage: 2 DF, BID
  4. LEVOTHYROX [Concomitant]
     Dosage: 175 MCG,1 IN 1 DAY
  5. FOLIC ACID [Concomitant]
     Dosage: UNK

REACTIONS (7)
  - CONFUSIONAL STATE [None]
  - CREATININE RENAL CLEARANCE DECREASED [None]
  - DEHYDRATION [None]
  - DISORIENTATION [None]
  - DRUG ADMINISTRATION ERROR [None]
  - HYPERCALCAEMIA [None]
  - RENAL FAILURE ACUTE [None]
